FAERS Safety Report 8415505-6 (Version None)
Quarter: 2012Q2

REPORT INFORMATION
  Report Type: 
  Country: None (occurrence: None)
  Receive Date: 20120606
  Receipt Date: 20120601
  Transmission Date: 20120825
  Serious: Yes (Other)
  Sender: FDA-Public Use
  Company Number: GB-SANOFI-AVENTIS-2012SA039113

PATIENT
  Age: 71 Year
  Sex: Female
  Weight: 64 kg

DRUGS (7)
  1. FLUTICASONE PROPIONATE [Concomitant]
     Dates: start: 20120217, end: 20120316
  2. SIMVASTATIN [Concomitant]
     Dates: start: 20120215, end: 20120314
  3. SIMVASTATIN [Concomitant]
     Dates: start: 20120316
  4. CHLORPHENIRAMINE TAB [Concomitant]
     Dates: start: 20120524
  5. AMLODIPINE [Concomitant]
     Dates: start: 20120215, end: 20120314
  6. AMLODIPINE [Concomitant]
     Dates: start: 20120316
  7. FEXOFENADINE HYDROCHLORIDE [Suspect]
     Route: 065
     Dates: start: 20120217, end: 20120524

REACTIONS (2)
  - LIP SWELLING [None]
  - PRODUCT SUBSTITUTION ISSUE [None]
